FAERS Safety Report 9162711 (Version 1)
Quarter: 2013Q1

REPORT INFORMATION
  Report Type: Spontaneous
  Country: US (occurrence: US)
  Receive Date: 20130314
  Receipt Date: 20130314
  Transmission Date: 20140127
  Serious: Yes (Disabling, Other)
  Sender: FDA-Public Use
  Company Number: US-PFIZER INC-2013083956

PATIENT
  Age: 60 Year
  Sex: Female

DRUGS (12)
  1. LIPITOR [Suspect]
     Indication: BLOOD CHOLESTEROL INCREASED
     Dosage: 20 MG, DAILY
  2. NEURONTIN [Suspect]
     Indication: NERVE INJURY
     Dosage: 600 MG (TWO 300 MG CAPSULES), 4X/DAY
     Route: 048
     Dates: start: 2011
  3. NEURONTIN [Suspect]
     Indication: PAIN IN EXTREMITY
  4. ASACOL [Concomitant]
     Indication: NEOPLASM PROPHYLAXIS
     Dosage: 900 MG, 3X/DAY
  5. FAMOTIDINE [Concomitant]
     Dosage: UNK, 2X/DAY
  6. CYMBALTA [Concomitant]
     Dosage: 60 MG, DAILY
  7. XANAX [Concomitant]
     Dosage: 01 MG, 3X/DAY
  8. METANX [Concomitant]
     Dosage: UNK, DAILY
  9. OMEPRAZOLE [Concomitant]
     Dosage: UNK, 2X/DAY
  10. LISINOPRIL [Concomitant]
     Dosage: UNK, DAILY
  11. MUCINEX [Concomitant]
     Dosage: UNK, 2X/DAY
  12. ASPIRIN [Concomitant]
     Dosage: UNK, DAILY

REACTIONS (5)
  - Activities of daily living impaired [Not Recovered/Not Resolved]
  - Trigger finger [Not Recovered/Not Resolved]
  - Burning sensation [Unknown]
  - Pain in extremity [Unknown]
  - Hypoaesthesia [Unknown]
